FAERS Safety Report 14090952 (Version 2)
Quarter: 2017Q4

REPORT INFORMATION
  Report Type: Spontaneous
  Country: IT (occurrence: IT)
  Receive Date: 20171016
  Receipt Date: 20171027
  Transmission Date: 20180321
  Serious: Yes (Other)
  Sender: FDA-Public Use
  Company Number: IT-ROCHE-2007638

PATIENT
  Age: 74 Year
  Sex: Female

DRUGS (10)
  1. DOCETAXEL. [Suspect]
     Active Substance: DOCETAXEL
     Indication: INVASIVE DUCTAL BREAST CARCINOMA
     Route: 065
     Dates: start: 201410
  2. HERCEPTIN [Suspect]
     Active Substance: TRASTUZUMAB
     Route: 065
     Dates: start: 201410
  3. EPIRUBICIN [Concomitant]
     Active Substance: EPIRUBICIN
  4. PERTUZUMAB. [Suspect]
     Active Substance: PERTUZUMAB
     Indication: INVASIVE DUCTAL BREAST CARCINOMA
     Route: 065
     Dates: start: 201410
  5. IBANDRONATE [Concomitant]
     Active Substance: IBANDRONATE SODIUM
  6. CYCLOPHOSPHAMID [Concomitant]
     Active Substance: CYCLOPHOSPHAMIDE
  7. VALSARTAN. [Concomitant]
     Active Substance: VALSARTAN
     Route: 065
  8. HERCEPTIN [Suspect]
     Active Substance: TRASTUZUMAB
     Indication: INVASIVE DUCTAL BREAST CARCINOMA
     Route: 065
     Dates: start: 201302, end: 201402
  9. DENOSUMAB [Concomitant]
     Active Substance: DENOSUMAB
  10. PEGFILGRASTIM [Concomitant]
     Active Substance: PEGFILGRASTIM
     Indication: FEBRILE NEUTROPENIA
     Route: 065

REACTIONS (2)
  - Invasive ductal breast carcinoma [Unknown]
  - Neuropathy peripheral [Unknown]
